FAERS Safety Report 4551137-8 (Version None)
Quarter: 2005Q1

REPORT INFORMATION
  Report Type: 
  Country: None (occurrence: None)
  Receive Date: 20050113
  Receipt Date: 20050104
  Transmission Date: 20050727
  Serious: Yes (Hospitalization, Other)
  Sender: FDA-Public Use
  Company Number: US-JNJFOC-20050101458

PATIENT
  Sex: Female

DRUGS (4)
  1. REMICADE [Suspect]
     Route: 042
  2. REMICADE [Suspect]
     Indication: RHEUMATOID ARTHRITIS
     Route: 042
  3. METHOTREXATE [Suspect]
     Indication: RHEUMATOID ARTHRITIS
  4. BIRTH CONTROL NOS [Concomitant]

REACTIONS (5)
  - DRUG INTERACTION [None]
  - INFECTION IN AN IMMUNOCOMPROMISED HOST [None]
  - NASOPHARYNGITIS [None]
  - PNEUMONIA LEGIONELLA [None]
  - SINUSITIS [None]
